FAERS Safety Report 7339893-7 (Version None)
Quarter: 2011Q1

REPORT INFORMATION
  Report Type: 
  Country: None (occurrence: None)
  Receive Date: 20110309
  Receipt Date: 20110225
  Transmission Date: 20110831
  Serious: Yes (Other)
  Sender: FDA-Public Use
  Company Number: US-ELI_LILLY_AND_COMPANY-US201103000099

PATIENT
  Sex: Female

DRUGS (1)
  1. FORTEO [Suspect]
     Indication: OSTEOPOROSIS
     Dosage: 20 UG, DAILY (1/D)
     Dates: start: 20110101

REACTIONS (8)
  - INJECTION SITE PAIN [None]
  - MUSCLE SPASMS [None]
  - HEADACHE [None]
  - DYSPEPSIA [None]
  - INJECTION SITE HAEMATOMA [None]
  - LOSS OF CONSCIOUSNESS [None]
  - POTENTIATING DRUG INTERACTION [None]
  - INJECTION SITE HAEMORRHAGE [None]
